FAERS Safety Report 18441448 (Version 7)
Quarter: 2021Q1

REPORT INFORMATION
  Report Type: Report from Study
  Country: ES (occurrence: ES)
  Receive Date: 20201029
  Receipt Date: 20210113
  Transmission Date: 20210419
  Serious: Yes (Death, Life-Threatening, Hospitalization, Disabling)
  Sender: FDA-Public Use
  Company Number: ES-ROCHE-2691018

PATIENT
  Age: 74 Year
  Sex: Male
  Weight: 60.4 kg

DRUGS (4)
  1. TOCILIZUMAB. [Suspect]
     Active Substance: TOCILIZUMAB
     Indication: COVID-19 PNEUMONIA
     Dosage: LAST DATE PRIOR TO SAE ON 30/SEP/2020
     Route: 042
     Dates: start: 20200929
  2. DEXAMETHASONE. [Suspect]
     Active Substance: DEXAMETHASONE
     Indication: COVID-19
     Route: 042
     Dates: start: 20200929, end: 20201004
  3. DEXAMETHASONE. [Suspect]
     Active Substance: DEXAMETHASONE
     Route: 042
     Dates: start: 20201015, end: 20201024
  4. ENOXAPARIN [Concomitant]
     Active Substance: ENOXAPARIN
     Indication: PULMONARY EMBOLISM
     Route: 058
     Dates: start: 20200929

REACTIONS (6)
  - Acute respiratory distress syndrome [Fatal]
  - Cerebrovascular accident [Not Recovered/Not Resolved]
  - Septic shock [Recovered/Resolved]
  - Device related bacteraemia [Not Recovered/Not Resolved]
  - Multi-organ disorder [Fatal]
  - Device related sepsis [Recovered/Resolved]

NARRATIVE: CASE EVENT DATE: 20201002
